FAERS Safety Report 7220661-1 (Version None)
Quarter: 2011Q1

REPORT INFORMATION
  Report Type: 
  Country: None (occurrence: None)
  Receive Date: 20110111
  Receipt Date: 20110105
  Transmission Date: 20110831
  Serious: Yes (Death)
  Sender: FDA-Public Use
  Company Number: CN-ABBOTT-10P-035-0694010-00

PATIENT
  Age: 23 Year
  Sex: Male

DRUGS (5)
  1. VITAMIN B6 [Concomitant]
     Indication: PRODUCT USED FOR UNKNOWN INDICATION
     Dates: start: 20100125, end: 20100125
  2. VALPROATE SODIUM [Suspect]
     Indication: EPILEPSY
     Route: 048
     Dates: start: 20100125, end: 20100125
  3. ALL OTHER THERAPEUTIC PRODUCTS [Suspect]
     Indication: CONVULSION
     Route: 048
  4. ALL OTHER THERAPEUTIC PRODUCTS [Concomitant]
     Indication: PRODUCT USED FOR UNKNOWN INDICATION
     Dates: start: 20100125, end: 20100125
  5. ALL OTHER THERAPEUTIC PRODUCTS [Suspect]
     Indication: CONFUSIONAL STATE

REACTIONS (1)
  - STATUS EPILEPTICUS [None]
